FAERS Safety Report 21088255 (Version 2)
Quarter: 2022Q3

REPORT INFORMATION
  Report Type: Spontaneous
  Country: US (occurrence: US)
  Receive Date: 20220715
  Receipt Date: 20220808
  Transmission Date: 20221027
  Serious: Yes (Hospitalization)
  Sender: FDA-Public Use
  Company Number: US-OYSTER POINT PHARMA, INC.-2022OYS00694

PATIENT
  Age: 70 Year
  Sex: Female
  Weight: 77.098 kg

DRUGS (15)
  1. TYRVAYA [Suspect]
     Active Substance: VARENICLINE TARTRATE
     Indication: Dry eye
     Dosage: 1 SPRAY IN EACH NOSTRIL, 2X/DAY
     Route: 045
  2. TYRVAYA [Suspect]
     Active Substance: VARENICLINE TARTRATE
     Indication: Sjogren^s syndrome
  3. SIMPONI [Concomitant]
     Active Substance: GOLIMUMAB
     Dosage: 150 MG
     Route: 042
  4. WARFARIN [Concomitant]
     Active Substance: WARFARIN
     Dosage: UNK, AS DIRECTED
     Route: 048
  5. WARFARIN [Concomitant]
     Active Substance: WARFARIN
     Dosage: UNK, AS DIRECTED
     Route: 048
  6. UNSPECIFIED INGREDIENT [Concomitant]
     Active Substance: UNSPECIFIED INGREDIENT
  7. ESCITALOPRAM [Concomitant]
     Active Substance: ESCITALOPRAM OXALATE
     Dosage: 20 MG, 1X/DAY
     Route: 048
  8. PANTOPRAZOLE [Concomitant]
     Active Substance: PANTOPRAZOLE
     Dosage: 40 MG, 1X/DAY
     Route: 048
  9. ZOLPIDEM [Concomitant]
     Active Substance: ZOLPIDEM TARTRATE
     Indication: Sleep disorder
     Dosage: 10 MG, 1X/DAY AS NEEDED
  10. ROSUVASTATIN [Concomitant]
     Active Substance: ROSUVASTATIN
     Dosage: 20 MG, 1X/DAY
     Route: 048
  11. ACETAMINOPHEN [Concomitant]
     Active Substance: ACETAMINOPHEN
     Dosage: 1000 MG, 3X/DAY
     Route: 048
  12. RESTASIS [Concomitant]
     Active Substance: CYCLOSPORINE
     Dosage: 1 DROP IN EACH EYE, 2X/DAY
     Route: 047
  13. LEVOTHYROXINE [Concomitant]
     Active Substance: LEVOTHYROXINE
     Dosage: 50 ?G, 1X/DAY
     Route: 048
  14. FLUTICASONE PROPIONATE [Concomitant]
     Active Substance: FLUTICASONE PROPIONATE
     Indication: Nasal congestion
     Dosage: 2 SPRAY INTRANASAL, 1X/DAY AS NEEDED
     Route: 045
  15. DICLOFENAC SODIUM [Concomitant]
     Active Substance: DICLOFENAC SODIUM
     Indication: Pain
     Dosage: 2 G, 4X/DAY
     Route: 061

REACTIONS (8)
  - Gastritis [Recovering/Resolving]
  - Abdominal pain upper [Recovering/Resolving]
  - Dehydration [Unknown]
  - Palatal oedema [Recovering/Resolving]
  - Vomiting [Recovering/Resolving]
  - Oropharyngeal pain [Not Recovered/Not Resolved]
  - Oral pain [Not Recovered/Not Resolved]
  - Palatal disorder [Not Recovered/Not Resolved]

NARRATIVE: CASE EVENT DATE: 20220628
